FAERS Safety Report 7332070-5 (Version None)
Quarter: 2011Q1

REPORT INFORMATION
  Report Type: 
  Country: None (occurrence: None)
  Receive Date: 20110222
  Receipt Date: 20110209
  Transmission Date: 20110831
  Serious: Yes (Hospitalization, Other)
  Sender: FDA-Public Use
  Company Number: 2011MA001396

PATIENT
  Age: 60 Year
  Sex: Female

DRUGS (1)
  1. PROPRANOLOL HCL EXTENDED-RELEASE CAPSULES USP, 80MG (AELLC) (PROPRANOL [Suspect]
     Indication: TREMOR
     Dosage: 80 MG;QD

REACTIONS (1)
  - RETROPERITONEAL FIBROSIS [None]
